FAERS Safety Report 5403054-9 (Version None)
Quarter: 2007Q3

REPORT INFORMATION
  Report Type: 
  Country: None (occurrence: None)
  Receive Date: 20070801
  Receipt Date: 20070724
  Transmission Date: 20080115
  Serious: Yes (Hospitalization, Disabling)
  Sender: FDA-Public Use
  Company Number: CA-SANOFI-SYNTHELABO-A01200705717

PATIENT
  Sex: Male

DRUGS (5)
  1. ELIGARD [Suspect]
     Indication: PROSTATE CANCER
     Route: 030
     Dates: start: 20070222, end: 20070514
  2. NOVASEN [Concomitant]
  3. LIPIDIL [Concomitant]
  4. DIOVAN [Concomitant]
  5. CRESTOR [Concomitant]

REACTIONS (3)
  - APHASIA [None]
  - CEREBROVASCULAR ACCIDENT [None]
  - HEMIPARESIS [None]
